FAERS Safety Report 21791305 (Version 1)
Quarter: 2022Q4

REPORT INFORMATION
  Report Type: Report from Study
  Country: DE (occurrence: DE)
  Receive Date: 20221228
  Receipt Date: 20221228
  Transmission Date: 20230112
  Serious: Yes (Death, Hospitalization, Other)
  Sender: FDA-Public Use
  Company Number: DE-PFM-2022-09081

PATIENT
  Sex: Male
  Weight: 84 kg

DRUGS (6)
  1. ENCORAFENIB [Suspect]
     Active Substance: ENCORAFENIB
     Indication: Colorectal cancer
     Dosage: 300 MG/DAY
     Route: 048
     Dates: start: 20220928, end: 20221130
  2. CETUXIMAB [Suspect]
     Active Substance: CETUXIMAB
     Indication: Colorectal cancer
     Dosage: 250 MG/M2, WEEKLY
     Route: 042
     Dates: start: 20220928, end: 20221130
  3. ALLOPURINOL [Concomitant]
     Active Substance: ALLOPURINOL
     Indication: Calculus urinary
     Dosage: 300 MG, DAILY
     Route: 048
     Dates: start: 2020
  4. OLMESARTAN [Concomitant]
     Active Substance: OLMESARTAN
     Indication: Hypertension
     Dosage: 20 MG, DAILY
     Route: 048
     Dates: start: 202205
  5. AMLODIPINE [Concomitant]
     Active Substance: AMLODIPINE BESYLATE
     Indication: Hypertension
     Dosage: 5 MG, DAILY
     Route: 048
     Dates: start: 202205
  6. XARELTO [Concomitant]
     Active Substance: RIVAROXABAN
     Indication: Thrombosis
     Dosage: 20 MG, DAILY
     Route: 048
     Dates: start: 20220826

REACTIONS (1)
  - Abdominal discomfort [Fatal]

NARRATIVE: CASE EVENT DATE: 20221205
